FAERS Safety Report 5262953-1 (Version None)
Quarter: 2007Q1

REPORT INFORMATION
  Report Type: 
  Country: None (occurrence: None)
  Receive Date: 20070312
  Receipt Date: 20070227
  Transmission Date: 20070707
  Serious: Yes (Other)
  Sender: FDA-Public Use
  Company Number: GB-SHR-GB-2007-007006

PATIENT
  Age: 49 Year
  Sex: Female

DRUGS (2)
  1. FLUDARA [Suspect]
     Dosage: 24 MG/M2, 6 CYCLES
     Route: 048
  2. CYCLOPHOSPHAMIDE [Suspect]
     Dosage: 150 MG/M2,4 CYCLES

REACTIONS (1)
  - AUTOIMMUNE NEUTROPENIA [None]
